FAERS Safety Report 5362878-7 (Version None)
Quarter: 2007Q2

REPORT INFORMATION
  Report Type: 
  Country: None (occurrence: None)
  Receive Date: 20070612
  Receipt Date: 20070606
  Transmission Date: 20071010
  Serious: Yes (Other)
  Sender: FDA-Public Use
  Company Number: CHNY2007DE02142

PATIENT

DRUGS (1)
  1. NICOTINE [Suspect]
     Dosage: 21 MG, QD, TRANSDERMAL
     Route: 062

REACTIONS (1)
  - CARDIOVASCULAR DISORDER [None]
